FAERS Safety Report 14194178 (Version 1)
Quarter: 2017Q4

REPORT INFORMATION
  Report Type: Spontaneous
  Country: US (occurrence: US)
  Receive Date: 20171116
  Receipt Date: 20171116
  Transmission Date: 20180321
  Serious: Yes (Other)
  Sender: FDA-Public Use
  Company Number: PHHY2017US164021

PATIENT
  Age: 54 Year
  Sex: Female

DRUGS (3)
  1. DOXYCYCLINE. [Suspect]
     Active Substance: DOXYCYCLINE
     Indication: LYME DISEASE
     Dosage: 100 MG, BID
     Route: 048
  2. PREGABALIN. [Concomitant]
     Active Substance: PREGABALIN
     Indication: LYME DISEASE
     Route: 065
  3. AMOXICILLIN CLAVULANIC ACID [Concomitant]
     Active Substance: AMOXICILLIN\CLAVULANIC ACID
     Indication: EAR CANAL ERYTHEMA
     Route: 065

REACTIONS (5)
  - Hypoaesthesia [Recovered/Resolved]
  - Lagophthalmos [Recovered/Resolved]
  - Facial paralysis [Recovered/Resolved]
  - Condition aggravated [Recovered/Resolved]
  - Facial pain [Recovered/Resolved]
